FAERS Safety Report 14075605 (Version 2)
Quarter: 2017Q4

REPORT INFORMATION
  Report Type: Spontaneous
  Country: US (occurrence: US)
  Receive Date: 20171010
  Receipt Date: 20171113
  Transmission Date: 20180321
  Serious: No
  Sender: FDA-Public Use
  Company Number: US-MYLANLABS-2016M1041686

PATIENT
  Sex: Male

DRUGS (1)
  1. HYDROCHLOROTHIAZIDE/VALSARTAN [Suspect]
     Active Substance: HYDROCHLOROTHIAZIDE\VALSARTAN
     Indication: BLOOD PRESSURE MANAGEMENT
     Dosage: 320/12.5 MG, QD
     Route: 048

REACTIONS (3)
  - Inflammation [None]
  - Renal disorder [Recovered/Resolved]
  - Back pain [Recovered/Resolved]
